FAERS Safety Report 11729284 (Version 1)
Quarter: 2015Q4

REPORT INFORMATION
  Report Type: Spontaneous
  Country: IT (occurrence: IT)
  Receive Date: 20151112
  Receipt Date: 20151112
  Transmission Date: 20160304
  Serious: Yes (Hospitalization)
  Sender: FDA-Public Use
  Company Number: IT-ASTRAZENECA-2015SF08852

PATIENT
  Age: 29859 Day
  Sex: Male

DRUGS (10)
  1. OMNIC [Concomitant]
     Active Substance: TAMSULOSIN HYDROCHLORIDE
     Dosage: 0.4 MG MODIFIED RELEASE HARD CAPSULE
  2. LASIX [Concomitant]
     Active Substance: FUROSEMIDE
     Dosage: 25 MG TABLET
  3. BRILIQUE [Suspect]
     Active Substance: TICAGRELOR
     Route: 048
     Dates: start: 20141101, end: 20151030
  4. METOPROLOL [Concomitant]
     Active Substance: METOPROLOL
  5. CARDIOASPIRIN [Suspect]
     Active Substance: ASPIRIN
     Route: 048
     Dates: start: 20131201, end: 20151030
  6. CARDURA [Concomitant]
     Active Substance: DOXAZOSIN MESYLATE
     Dosage: 4 MG TABLET
  7. AMLODIPINE [Concomitant]
     Active Substance: AMLODIPINE BESYLATE
  8. NOVONORM [Concomitant]
     Active Substance: REPAGLINIDE
     Dosage: 1.0 MG TABLET
  9. TORVAST [Concomitant]
     Active Substance: ATORVASTATIN
     Dosage: 40 MG TABLET
  10. AVODART [Concomitant]
     Active Substance: DUTASTERIDE
     Dosage: 0.5 MG SOFT CAPSULE

REACTIONS (4)
  - Anaemia [Recovering/Resolving]
  - Rectal haemorrhage [Recovering/Resolving]
  - Duodenal ulcer [Recovering/Resolving]
  - Haematemesis [Recovering/Resolving]

NARRATIVE: CASE EVENT DATE: 20151030
